FAERS Safety Report 5413588-9 (Version None)
Quarter: 2007Q3

REPORT INFORMATION
  Report Type: 
  Country: None (occurrence: None)
  Receive Date: 20070810
  Receipt Date: 20070724
  Transmission Date: 20080115
  Serious: Yes (Other)
  Sender: FDA-Public Use
  Company Number: 5239 / 2007S1006038

PATIENT
  Age: 24 Year
  Sex: Male

DRUGS (1)
  1. AMNESTEEM [Suspect]
     Indication: ACNE
     Dosage: 40 MG, QD, PO
     Route: 048
     Dates: start: 20070417, end: 20070506

REACTIONS (3)
  - ALANINE AMINOTRANSFERASE INCREASED [None]
  - APPENDICECTOMY [None]
  - ASPARTATE AMINOTRANSFERASE INCREASED [None]
